FAERS Safety Report 6775245-6 (Version None)
Quarter: 2010Q2

REPORT INFORMATION
  Report Type: 
  Country: None (occurrence: None)
  Receive Date: 20100617
  Receipt Date: 20100505
  Transmission Date: 20101027
  Serious: Yes (Life-Threatening, Other)
  Sender: FDA-Public Use
  Company Number: US-BAXTER-2010BH000849

PATIENT
  Age: 68 Year
  Sex: Male
  Weight: 72 kg

DRUGS (41)
  1. HEPARIN SODIUM [Suspect]
     Indication: ANTICOAGULANT THERAPY
     Route: 065
     Dates: start: 20071002
  2. HEPARIN SODIUM [Suspect]
     Route: 058
     Dates: start: 20071002, end: 20071023
  3. ZOCOR [Concomitant]
     Indication: DRUG USE FOR UNKNOWN INDICATION
     Route: 065
  4. NORVASC [Concomitant]
     Indication: DRUG USE FOR UNKNOWN INDICATION
     Route: 065
  5. METFORMIN [Concomitant]
     Indication: DRUG USE FOR UNKNOWN INDICATION
     Route: 065
  6. ASPIRIN [Concomitant]
     Indication: DRUG USE FOR UNKNOWN INDICATION
     Route: 065
  7. PROTONIX [Concomitant]
     Indication: DRUG USE FOR UNKNOWN INDICATION
     Route: 065
  8. DEXTROSE CONCENTRATE SOLUTION 50% [Concomitant]
     Indication: DRUG USE FOR UNKNOWN INDICATION
     Route: 065
  9. CEFAZOLIN [Concomitant]
     Indication: DRUG USE FOR UNKNOWN INDICATION
     Route: 065
  10. MORPHINE [Concomitant]
     Indication: DRUG USE FOR UNKNOWN INDICATION
     Route: 065
  11. DIPRIVAN [Concomitant]
     Indication: DRUG USE FOR UNKNOWN INDICATION
     Route: 065
  12. METOPROLOL [Concomitant]
     Indication: DRUG USE FOR UNKNOWN INDICATION
     Route: 065
  13. VASOTEC [Concomitant]
     Indication: DRUG USE FOR UNKNOWN INDICATION
     Route: 065
  14. LASIX [Concomitant]
     Indication: DRUG USE FOR UNKNOWN INDICATION
     Route: 065
  15. SUBLIMAZE PRESERVATIVE FREE [Concomitant]
     Indication: DRUG USE FOR UNKNOWN INDICATION
     Route: 065
  16. TYLENOL [Concomitant]
     Indication: DRUG USE FOR UNKNOWN INDICATION
     Route: 065
  17. ALBUMIN (HUMAN) [Concomitant]
     Indication: BLOOD ALBUMIN DECREASED
     Route: 065
  18. ALDACTONE [Concomitant]
     Indication: BLOOD PRESSURE
     Route: 048
  19. PLAVIX [Concomitant]
     Indication: ANTICOAGULANT THERAPY
     Route: 048
  20. COREG [Concomitant]
     Indication: CARDIAC DISORDER
     Route: 048
  21. LIPITOR [Concomitant]
     Indication: BLOOD CHOLESTEROL
     Route: 048
  22. HYDRALAZINE HCL [Concomitant]
     Indication: BLOOD PRESSURE
     Route: 048
  23. POTASSIUM CHLORIDE [Concomitant]
     Indication: SUPPLEMENTATION THERAPY
     Route: 048
  24. GLIPIZIDE [Concomitant]
     Indication: DIABETES MELLITUS
     Route: 048
  25. MIDAZOLAM [Concomitant]
     Indication: DRUG USE FOR UNKNOWN INDICATION
     Route: 065
     Dates: start: 20071002
  26. SEVOFLURANE [Concomitant]
     Indication: DRUG USE FOR UNKNOWN INDICATION
     Route: 065
     Dates: start: 20071002
  27. ETOMIDATE [Concomitant]
     Indication: DRUG USE FOR UNKNOWN INDICATION
     Route: 065
     Dates: start: 20071002
  28. REGLAN [Concomitant]
     Indication: DRUG USE FOR UNKNOWN INDICATION
     Route: 065
     Dates: start: 20071002
  29. PHENYLEPHRINE [Concomitant]
     Indication: DRUG USE FOR UNKNOWN INDICATION
     Route: 065
     Dates: start: 20071002
  30. LIDOCAINE [Concomitant]
     Indication: DRUG USE FOR UNKNOWN INDICATION
     Route: 042
     Dates: start: 20071002
  31. REPAGLINIDE [Concomitant]
     Indication: DIABETES MELLITUS
     Route: 048
  32. LOPRESSOR [Concomitant]
     Indication: BLOOD PRESSURE
     Route: 048
  33. LACTINEX [Concomitant]
     Indication: DRUG USE FOR UNKNOWN INDICATION
     Route: 048
  34. LANTUS [Concomitant]
     Indication: DRUG USE FOR UNKNOWN INDICATION
     Route: 058
  35. FLAGYL [Concomitant]
     Indication: DRUG USE FOR UNKNOWN INDICATION
     Route: 048
  36. BACTRIM [Concomitant]
     Indication: DRUG USE FOR UNKNOWN INDICATION
     Route: 048
  37. AMIODARONE [Concomitant]
     Indication: BLOOD PRESSURE
     Route: 048
  38. MANNITOL [Concomitant]
     Indication: DRUG USE FOR UNKNOWN INDICATION
     Route: 065
  39. HETASTARCH 6% IN 0.9% SODIUM CHLORIDE IN PLASTIC CONTAINER [Concomitant]
     Indication: DRUG USE FOR UNKNOWN INDICATION
     Route: 065
  40. VERSED [Concomitant]
     Indication: DRUG USE FOR UNKNOWN INDICATION
     Route: 042
  41. DILAUDID [Concomitant]
     Indication: DRUG USE FOR UNKNOWN INDICATION
     Route: 042

REACTIONS (6)
  - ANAEMIA POSTOPERATIVE [None]
  - AZOTAEMIA [None]
  - BACTERAEMIA [None]
  - PNEUMONIA KLEBSIELLA [None]
  - RESPIRATORY FAILURE [None]
  - VENTRICULAR TACHYCARDIA [None]
